FAERS Safety Report 14172750 (Version 1)
Quarter: 2017Q4

REPORT INFORMATION
  Report Type: Spontaneous
  Country: US (occurrence: US)
  Receive Date: 20171108
  Receipt Date: 20171108
  Transmission Date: 20180321
  Serious: Yes (Disabling)
  Sender: FDA-Public Use
  Company Number: None

PATIENT
  Age: 17 Year
  Sex: Female
  Weight: 56.25 kg

DRUGS (2)
  1. IC MONTELUKAST SOD 10 MG TABLET, 10MG MERCK [Suspect]
     Active Substance: MONTELUKAST SODIUM
     Indication: ASTHMA
     Dosage: ?          QUANTITY:1 TABLET(S);?
     Route: 048
     Dates: start: 20171019, end: 20171103
  2. PRO AIR RESCUE INHALER [Concomitant]

REACTIONS (5)
  - Therapy cessation [None]
  - Hallucination [None]
  - Sleep disorder [None]
  - Sleep paralysis [None]
  - Insomnia [None]

NARRATIVE: CASE EVENT DATE: 20171102
